FAERS Safety Report 22034555 (Version 1)
Quarter: 2023Q1

REPORT INFORMATION
  Report Type: Spontaneous
  Country: ES (occurrence: ES)
  Receive Date: 20230224
  Receipt Date: 20230224
  Transmission Date: 20230418
  Serious: Yes (Life-Threatening, Hospitalization)
  Sender: FDA-Public Use
  Company Number: ES-STRIDES ARCOLAB LIMITED-2023SP002759

PATIENT
  Age: 57 Year
  Sex: Female

DRUGS (2)
  1. VERAPAMIL [Interacting]
     Active Substance: VERAPAMIL HYDROCHLORIDE
     Indication: Hypertension
     Dosage: 120 MILLIGRAM, BID, SLOW RELEASE
     Route: 065
  2. GRAPEFRUIT [Interacting]
     Active Substance: GRAPEFRUIT
     Indication: Product used for unknown indication
     Dosage: 2 LITER,NOVELTY DIET BASED ON THE INTAKE OF ABOUT 2 LIT OF GRAPEFRUIT FRUIT DAILY PLUS PROTEIN
     Route: 065

REACTIONS (9)
  - Hyperhidrosis [Recovered/Resolved]
  - Asthenia [Recovered/Resolved]
  - Erythema [Recovered/Resolved]
  - Dehydration [Recovered/Resolved]
  - Bradycardia [Recovered/Resolved]
  - Hypotension [Recovered/Resolved]
  - Overdose [Unknown]
  - Drug interaction [Unknown]
  - Toxicity to various agents [Unknown]
